FAERS Safety Report 7287583-1 (Version None)
Quarter: 2011Q1

REPORT INFORMATION
  Report Type: 
  Country: None (occurrence: None)
  Receive Date: 20110211
  Receipt Date: 20110204
  Transmission Date: 20110831
  Serious: Yes (Disabling)
  Sender: FDA-Public Use
  Company Number: US-ASTELLAS-2011US000533

PATIENT

DRUGS (1)
  1. PROTOPIC [Suspect]
     Indication: CORNEAL TRANSPLANT
     Dosage: UNK
     Route: 047

REACTIONS (3)
  - BLINDNESS [None]
  - OFF LABEL USE [None]
  - EYE DISORDER [None]
